FAERS Safety Report 7888886-X (Version None)
Quarter: 2011Q4

REPORT INFORMATION
  Report Type: 
  Country: None (occurrence: None)
  Receive Date: 20111031
  Receipt Date: 20111020
  Transmission Date: 20120403
  Serious: Yes (Hospitalization)
  Sender: FDA-Public Use
  Company Number: 2011SP049988

PATIENT
  Age: 5 Year
  Sex: Female

DRUGS (2)
  1. LORATADINE [Suspect]
     Indication: RHINITIS ALLERGIC
     Dosage: 0.5 GM;QD;PO
     Route: 048
     Dates: start: 20100413
  2. MONTELUKAST SODIUM [Suspect]
     Indication: ASTHMA
     Dosage: 4 MG;QD;PO
     Route: 048
     Dates: start: 20090804

REACTIONS (1)
  - HEPATIC FUNCTION ABNORMAL [None]
